FAERS Safety Report 10038807 (Version 1)
Quarter: 2014Q1

REPORT INFORMATION
  Report Type: Spontaneous
  Country: US (occurrence: None)
  Receive Date: 20140306
  Receipt Date: 20140306
  Transmission Date: 20141002
  Serious: Yes (Other)
  Sender: FDA-Public Use
  Company Number: 163-21880-13052398

PATIENT
  Age: 71 Year
  Sex: Male

DRUGS (7)
  1. REVLIMID (LENALIDOMIDE) (CAPSULES) [Suspect]
     Indication: PLASMA CELL MYELOMA
     Dosage: 14 IN 14 D
     Route: 048
     Dates: start: 201205, end: 201209
  2. ACYCLOVIR (ACICLOVIR) (TABLETS) [Concomitant]
  3. BACTRIM DS (BACTRIM) (UNKNOWN) [Concomitant]
  4. ENOXAPARIN SODIUM (HEPARIN-FRACTION, SODIUM SALT) (UNKNOWN) [Concomitant]
  5. LORAZEPAM (LORAZEPAM) (TABLETS) [Concomitant]
  6. MULTIVITAMINS (MULTIVITAMINS) (TABLETS) [Concomitant]
  7. OMEPRAZOLE (OMEPRAZOLE) (CAPSULES) [Concomitant]

REACTIONS (2)
  - Deep vein thrombosis [None]
  - Thrombophlebitis superficial [None]
